FAERS Safety Report 24534743 (Version 1)
Quarter: 2024Q4

REPORT INFORMATION
  Report Type: Spontaneous
  Country: US (occurrence: US)
  Receive Date: 20241022
  Receipt Date: 20241022
  Transmission Date: 20250115
  Serious: Yes (Other)
  Sender: ORGANON
  Company Number: US-ORGANON-O2410USA001602

PATIENT
  Age: 33 Year
  Sex: Female
  Weight: 117.93 kg

DRUGS (1)
  1. NEXPLANON [Suspect]
     Active Substance: ETONOGESTREL
     Indication: Heavy menstrual bleeding
     Dosage: 68 MG, 1 IMPLANT IN LEFT ARM EVERY 3 YEARS
     Route: 059
     Dates: start: 20241016

REACTIONS (10)
  - Thrombosis [Not Recovered/Not Resolved]
  - Condition aggravated [Not Recovered/Not Resolved]
  - Peripheral swelling [Not Recovered/Not Resolved]
  - Pain in extremity [Not Recovered/Not Resolved]
  - Musculoskeletal pain [Not Recovered/Not Resolved]
  - Chest pain [Not Recovered/Not Resolved]
  - Arthralgia [Not Recovered/Not Resolved]
  - Contraindicated product administered [Unknown]
  - Contraindicated product prescribed [Unknown]
  - Product use in unapproved indication [Unknown]

NARRATIVE: CASE EVENT DATE: 20241016
